FAERS Safety Report 14368617 (Version 2)
Quarter: 2018Q1

REPORT INFORMATION
  Report Type: Spontaneous
  Country: JP (occurrence: JP)
  Receive Date: 20180109
  Receipt Date: 20180206
  Transmission Date: 20180509
  Serious: Yes (Other)
  Sender: FDA-Public Use
  Company Number: JP-BAUSCH-BL-2017-036356

PATIENT
  Age: 47 Year
  Sex: Male

DRUGS (8)
  1. VINCRISTINE [Suspect]
     Active Substance: VINCRISTINE
     Indication: MANTLE CELL LYMPHOMA
     Dosage: HYPER-CVAD REGIMEN; 3 CYCLICAL
     Route: 065
  2. RITUXIMAB. [Suspect]
     Active Substance: RITUXIMAB
     Dosage: HIGH-DOSE CYTARABINE REGIMEN WITH RITUXIMAB; CYCLICAL
     Route: 065
  3. DEXAMETHASONE. [Suspect]
     Active Substance: DEXAMETHASONE
     Indication: MANTLE CELL LYMPHOMA
     Dosage: HYPER-CVAD REGIMEN; 3 CYCLICAL
     Route: 065
  4. CYTARABINE. [Suspect]
     Active Substance: CYTARABINE
     Indication: MANTLE CELL LYMPHOMA
     Dosage: HIGH-DOSE; CYCLICAL
     Route: 065
  5. RITUXIMAB. [Suspect]
     Active Substance: RITUXIMAB
     Indication: MANTLE CELL LYMPHOMA
     Dosage: 3 CYCLICAL
     Route: 065
  6. METHOTREXATE. [Suspect]
     Active Substance: METHOTREXATE
     Indication: MANTLE CELL LYMPHOMA
     Dosage: HIGH-DOSE; CYCLICAL
     Route: 065
  7. CYCLOPHOSPHAMIDE. [Suspect]
     Active Substance: CYCLOPHOSPHAMIDE
     Indication: MANTLE CELL LYMPHOMA
     Dosage: HYPER-CVAD REGIMEN; 3 CYCLICAL
     Route: 065
  8. DOXORUBICIN [Suspect]
     Active Substance: DOXORUBICIN
     Indication: MANTLE CELL LYMPHOMA
     Dosage: HYPER-CVAD REGIMEN; 3 CYCLICAL
     Route: 065

REACTIONS (3)
  - Pyoderma gangrenosum [Recovered/Resolved]
  - Helicobacter infection [Recovered/Resolved]
  - Hypogammaglobulinaemia [Unknown]
